FAERS Safety Report 11618988 (Version 1)
Quarter: 2015Q4

REPORT INFORMATION
  Report Type: Spontaneous
  Country: US (occurrence: US)
  Receive Date: 20151012
  Receipt Date: 20151012
  Transmission Date: 20160304
  Serious: Yes (Death, Hospitalization, Other)
  Sender: FDA-Public Use
  Company Number: US-DRREDDYS-USA/USA/15/0053191

PATIENT
  Age: 32 Year
  Sex: Female

DRUGS (1)
  1. QUETIAPINE FUMARATE TABLETS [Suspect]
     Active Substance: QUETIAPINE FUMARATE
     Indication: PRODUCT USED FOR UNKNOWN INDICATION
     Route: 065

REACTIONS (8)
  - Toxicity to various agents [Fatal]
  - Rhabdomyolysis [Fatal]
  - Brain oedema [Fatal]
  - Electrocardiogram QRS complex prolonged [Unknown]
  - Metabolic acidosis [Fatal]
  - Acute kidney injury [Fatal]
  - Hypotension [Unknown]
  - Pulse absent [Unknown]
